FAERS Safety Report 9789792 (Version 3)
Quarter: 2014Q1

REPORT INFORMATION
  Report Type: Spontaneous
  Country: IT (occurrence: None)
  Receive Date: 20131227
  Receipt Date: 20140214
  Transmission Date: 20141002
  Serious: Yes (Other)
  Sender: FDA-Public Use
  Company Number: AUR-APL-2013-10622

PATIENT
  Age: 66 Year
  Sex: Female

DRUGS (3)
  1. PAROXETINE [Suspect]
     Indication: DEPRESSION
     Dates: start: 20130101, end: 20131004
  2. MIRTAZAPINE (MIRTAZAPINE) [Suspect]
     Indication: DEPRESSION
     Dates: start: 20130101, end: 20131004
  3. PRAZENE (PRAZEPAM) [Concomitant]

REACTIONS (8)
  - Hypertension [None]
  - Presyncope [None]
  - Encephalopathy [None]
  - Haemangioma [None]
  - Alanine aminotransferase increased [None]
  - Aspartate aminotransferase increased [None]
  - Vascular encephalopathy [None]
  - Hypertension [None]
